FAERS Safety Report 25742240 (Version 1)
Quarter: 2025Q3

REPORT INFORMATION
  Report Type: Spontaneous
  Country: EU (occurrence: EU)
  Receive Date: 20250829
  Receipt Date: 20250829
  Transmission Date: 20251020
  Serious: Yes (Other)
  Sender: ASTELLAS
  Company Number: EU-ASTELLAS-2025-AER-047336

PATIENT
  Age: 39 Year

DRUGS (7)
  1. TACROLIMUS [Suspect]
     Active Substance: TACROLIMUS
     Indication: Lung transplant
     Route: 065
  2. LAPINE T-LYMPHOCYTE IMMUNE GLOBULIN [Concomitant]
     Active Substance: LAPINE T-LYMPHOCYTE IMMUNE GLOBULIN
     Indication: Lung transplant
     Route: 065
  3. BASILIXIMAB [Concomitant]
     Active Substance: BASILIXIMAB
     Indication: Lung transplant
     Route: 065
  4. RITUXIMAB [Concomitant]
     Active Substance: RITUXIMAB
     Indication: Lung transplant
     Route: 065
  5. ECULIZUMAB [Concomitant]
     Active Substance: ECULIZUMAB
     Indication: Lung transplant
     Route: 065
  6. TOFACITINIB [Concomitant]
     Active Substance: TOFACITINIB
     Indication: Lung transplant
     Route: 065
  7. MYCOPHENOLATE MOFETIL [Concomitant]
     Active Substance: MYCOPHENOLATE MOFETIL
     Indication: Lung transplant
     Route: 065

REACTIONS (3)
  - Transplant rejection [Unknown]
  - Traumatic lung injury [Unknown]
  - Off label use [Unknown]
